FAERS Safety Report 11782647 (Version 8)
Quarter: 2016Q2

REPORT INFORMATION
  Report Type: Spontaneous
  Country: US (occurrence: US)
  Receive Date: 20151127
  Receipt Date: 20160622
  Transmission Date: 20160815
  Serious: Yes (Other)
  Sender: FDA-Public Use
  Company Number: US-JNJFOC-20151115126

PATIENT
  Age: 66 Year
  Sex: Male
  Weight: 88 kg

DRUGS (14)
  1. IMODIUM [Suspect]
     Active Substance: LOPERAMIDE HYDROCHLORIDE
     Indication: DIARRHOEA
     Route: 065
     Dates: start: 201511, end: 201512
  2. METAMUCIL [Concomitant]
     Active Substance: PLANTAGO SEED
     Route: 065
  3. IMODIUM [Suspect]
     Active Substance: LOPERAMIDE HYDROCHLORIDE
     Indication: DIARRHOEA
     Route: 065
     Dates: start: 20151001
  4. IMODIUM [Suspect]
     Active Substance: LOPERAMIDE HYDROCHLORIDE
     Indication: DIARRHOEA
     Route: 065
  5. SUTENT [Suspect]
     Active Substance: SUNITINIB MALATE
     Indication: RENAL CELL CARCINOMA
     Dosage: 2 WEEKS ON/1 WEEK OFF; 8 - 10/DAY
     Route: 048
     Dates: start: 20151216
  6. PRILOSEC [Concomitant]
     Active Substance: OMEPRAZOLE MAGNESIUM
     Indication: HAEMORRHOIDS
     Route: 065
  7. HYDROCORTISONE. [Concomitant]
     Active Substance: HYDROCORTISONE
     Route: 065
  8. MIRALAX [Concomitant]
     Active Substance: POLYETHYLENE GLYCOL 3350
     Route: 065
  9. SUTENT [Suspect]
     Active Substance: SUNITINIB MALATE
     Indication: RENAL CELL CARCINOMA
     Route: 048
  10. BABY ASPIRIN [Concomitant]
     Active Substance: ASPIRIN
     Route: 065
  11. SUTENT [Suspect]
     Active Substance: SUNITINIB MALATE
     Indication: RENAL CELL CARCINOMA
     Dosage: 12 TO 15/ DAY
     Route: 048
     Dates: start: 20150909
  12. SUTENT [Suspect]
     Active Substance: SUNITINIB MALATE
     Indication: RENAL CELL CARCINOMA
     Dosage: 2 WEEKS ON/1 WEEK OFF
     Route: 048
  13. LOMOTIL [Suspect]
     Active Substance: ATROPINE SULFATE\DIPHENOXYLATE HYDROCHLORIDE
     Indication: DIARRHOEA
     Dosage: 2 TABLETS; CONTAINER NUMBER: 1779339-03609
     Route: 065
     Dates: start: 20150917
  14. TYLENOL [Concomitant]
     Active Substance: ACETAMINOPHEN
     Indication: HAEMORRHOIDS
     Route: 065
     Dates: start: 20150929, end: 20151013

REACTIONS (18)
  - Drug ineffective [Unknown]
  - Blister [Not Recovered/Not Resolved]
  - Headache [Not Recovered/Not Resolved]
  - Skin mass [Recovered/Resolved]
  - Burning sensation [Recovered/Resolved]
  - Haematochezia [Not Recovered/Not Resolved]
  - Diarrhoea [Recovering/Resolving]
  - Abdominal pain upper [Not Recovered/Not Resolved]
  - Haemorrhoids [Not Recovered/Not Resolved]
  - Frequent bowel movements [Not Recovered/Not Resolved]
  - Incorrect dosage administered [Unknown]
  - Nausea [Recovered/Resolved]
  - Chromaturia [Recovered/Resolved]
  - Onychoclasis [Recovered/Resolved]
  - Middle insomnia [Not Recovered/Not Resolved]
  - Pain [Recovered/Resolved]
  - Device failure [Recovered/Resolved]
  - Proctalgia [Not Recovered/Not Resolved]

NARRATIVE: CASE EVENT DATE: 20150917
